FAERS Safety Report 9040807 (Version 1)
Quarter: 2013Q1

REPORT INFORMATION
  Report Type: Spontaneous
  Country: US (occurrence: None)
  Receive Date: 20130123
  Receipt Date: 20130123
  Transmission Date: 20140127
  Serious: No
  Sender: FDA-Public Use
  Company Number: None

PATIENT
  Sex: Female

DRUGS (1)
  1. GILENYA [Suspect]
     Indication: MULTIPLE SCLEROSIS
     Dosage: 0.5MG  ONCE A DAY  ORAL
     Route: 048
     Dates: start: 20120613, end: 20130117

REACTIONS (3)
  - Visual acuity reduced [None]
  - Vision blurred [None]
  - Treatment noncompliance [None]
